FAERS Safety Report 13177251 (Version 2)
Quarter: 2017Q3

REPORT INFORMATION
  Report Type: Report from Study
  Country: US (occurrence: US)
  Receive Date: 20170201
  Receipt Date: 20170731
  Transmission Date: 20171127
  Serious: No
  Sender: FDA-Public Use
  Company Number: US-EXELIXIS-CABO-16007479

PATIENT
  Sex: Male

DRUGS (7)
  1. LYCOPENE [Concomitant]
     Active Substance: LYCOPENE
  2. ALBUTEROL. [Concomitant]
     Active Substance: ALBUTEROL
  3. CABOMETYX [Suspect]
     Active Substance: CABOZANTINIB S-MALATE
     Indication: RENAL CANCER
     Dosage: 60 MG, QD
     Route: 048
     Dates: start: 20161006
  4. FLOVENT [Concomitant]
     Active Substance: FLUTICASONE PROPIONATE
  5. GENISTEIN [Concomitant]
     Active Substance: GENISTEIN
  6. SOY PROTEIN [Concomitant]
     Active Substance: SOY PROTEIN
  7. LASIX [Concomitant]
     Active Substance: FUROSEMIDE

REACTIONS (9)
  - Feeling cold [Unknown]
  - Malaise [Unknown]
  - Night sweats [Unknown]
  - Haemoglobin decreased [Unknown]
  - Fatigue [Not Recovered/Not Resolved]
  - Asthenia [Unknown]
  - Weight decreased [Not Recovered/Not Resolved]
  - Blood glucose fluctuation [Unknown]
  - Balance disorder [Unknown]
